FAERS Safety Report 5431603-3 (Version None)
Quarter: 2007Q3

REPORT INFORMATION
  Report Type: 
  Country: None (occurrence: None)
  Receive Date: 20070830
  Receipt Date: 20070820
  Transmission Date: 20080115
  Serious: Yes (Other)
  Sender: FDA-Public Use
  Company Number: GB-ELI_LILLY_AND_COMPANY-GB200708004309

PATIENT
  Age: 7 Year
  Sex: Male
  Weight: 36 kg

DRUGS (2)
  1. STRATTERA [Suspect]
     Indication: TOURETTE'S DISORDER
     Dosage: 25 MG, UNK
     Route: 048
     Dates: start: 20070426, end: 20070529
  2. FISH OIL [Concomitant]
     Dates: start: 20070426

REACTIONS (2)
  - AGGRESSION [None]
  - TIC [None]
